FAERS Safety Report 19706868 (Version 2)
Quarter: 2021Q4

REPORT INFORMATION
  Report Type: Spontaneous
  Country: US (occurrence: US)
  Receive Date: 20210817
  Receipt Date: 20211202
  Transmission Date: 20220303
  Serious: Yes (Hospitalization, Disabling, Other)
  Sender: FDA-Public Use
  Company Number: US-STRIDES ARCOLAB LIMITED-2021SP026415

PATIENT
  Age: 4 Decade
  Sex: Female

DRUGS (3)
  1. PREDNISOLONE [Suspect]
     Active Substance: PREDNISOLONE
     Indication: Rheumatoid arthritis
     Dosage: UNK
     Route: 065
  2. PREDNISOLONE [Suspect]
     Active Substance: PREDNISOLONE
     Dosage: UNK, WEANED
     Route: 065
  3. RITUXIMAB [Suspect]
     Active Substance: RITUXIMAB
     Indication: Rheumatoid arthritis
     Dosage: UNK
     Route: 065

REACTIONS (8)
  - Panniculitis lobular [Recovered/Resolved]
  - Deafness neurosensory [Unknown]
  - Weight decreased [Unknown]
  - Haemophagocytic lymphohistiocytosis [Unknown]
  - Enterovirus infection [Recovered/Resolved]
  - Myopathy [Unknown]
  - Coxsackie viral infection [Recovered/Resolved]
  - Skin infection [Recovered/Resolved]
